FAERS Safety Report 5581933-X (Version None)
Quarter: 2008Q1

REPORT INFORMATION
  Report Type: 
  Country: None (occurrence: None)
  Receive Date: 20080104
  Receipt Date: 20080102
  Transmission Date: 20080703
  Serious: Yes (Other)
  Sender: FDA-Public Use
  Company Number: A0701008A

PATIENT
  Age: 51 Year
  Sex: Female

DRUGS (4)
  1. IMITREX [Suspect]
     Indication: MIGRAINE
     Dosage: 100MG VARIABLE DOSE
     Route: 048
  2. FEXOFENADINE [Concomitant]
  3. PULMICORT [Concomitant]
  4. NASONEX [Concomitant]

REACTIONS (6)
  - ADVERSE EVENT [None]
  - ANAESTHETIC COMPLICATION [None]
  - DRUG INTERACTION [None]
  - POST PROCEDURAL HAEMORRHAGE [None]
  - SYNCOPE [None]
  - TREMOR [None]
